FAERS Safety Report 7150956-1 (Version None)
Quarter: 2010Q4

REPORT INFORMATION
  Report Type: 
  Country: None (occurrence: None)
  Receive Date: 20101210
  Receipt Date: 20101206
  Transmission Date: 20110411
  Serious: Yes (Hospitalization)
  Sender: FDA-Public Use
  Company Number: A0861496B

PATIENT
  Sex: Female
  Weight: 68.1 kg

DRUGS (3)
  1. PAZOPANIB [Suspect]
     Indication: RENAL CELL CARCINOMA
     Dosage: 200MG PER DAY
     Route: 048
     Dates: start: 20100714
  2. BEVACIZUMAB [Suspect]
     Indication: RENAL CELL CARCINOMA
     Dosage: 10MGK EVERY TWO WEEKS
     Route: 042
     Dates: start: 20100601
  3. BISPHOSPHONATES (NOS) [Suspect]

REACTIONS (4)
  - MALIGNANT NEOPLASM PROGRESSION [None]
  - METASTASES TO BONE [None]
  - OSTEONECROSIS OF JAW [None]
  - STREPTOCOCCUS TEST POSITIVE [None]
